FAERS Safety Report 10086428 (Version 1)
Quarter: 2014Q2

REPORT INFORMATION
  Report Type: Spontaneous
  Country: FR (occurrence: FR)
  Receive Date: 20140418
  Receipt Date: 20140418
  Transmission Date: 20141212
  Serious: Yes (Other)
  Sender: FDA-Public Use
  Company Number: FR-JNJFOC-20140406200

PATIENT
  Age: 85 Year
  Sex: Male

DRUGS (2)
  1. ZYTIGA [Suspect]
     Indication: PROSTATE CANCER
     Dosage: 4 TABLETS
     Route: 048
     Dates: start: 201304
  2. PREDNISONE [Concomitant]
     Indication: PROSTATE CANCER
     Route: 065

REACTIONS (5)
  - Oedema [Unknown]
  - Hypoalbuminaemia [Unknown]
  - N-terminal prohormone brain natriuretic peptide increased [Unknown]
  - Hypokalaemia [Unknown]
  - Treatment failure [Unknown]
